FAERS Safety Report 9483848 (Version 2)
Quarter: 2013Q3

REPORT INFORMATION
  Report Type: Report from Study
  Country: US (occurrence: US)
  Receive Date: 20130828
  Receipt Date: 20130830
  Transmission Date: 20140515
  Serious: Yes (Death)
  Sender: FDA-Public Use
  Company Number: PHEH2013US018109

PATIENT
  Age: 91 Year
  Sex: Male

DRUGS (3)
  1. EXJADE [Suspect]
     Indication: IRON OVERLOAD
     Dosage: 250 MG, UNK
  2. EXJADE [Suspect]
     Dosage: 500 MG, UNK
  3. EXJADE [Suspect]
     Dosage: 750 MG, UNK

REACTIONS (1)
  - Death [Fatal]
